FAERS Safety Report 7029528-5 (Version None)
Quarter: 2010Q4

REPORT INFORMATION
  Report Type: 
  Country: None (occurrence: None)
  Receive Date: 20101001
  Receipt Date: 20100916
  Transmission Date: 20110411
  Serious: Yes (Other)
  Sender: FDA-Public Use
  Company Number: THQ2010A02627

PATIENT
  Age: 7 Year
  Sex: Male

DRUGS (1)
  1. LANSOPRAZOLE [Suspect]
     Indication: REFLUX OESOPHAGITIS
     Dosage: 30 MG 1 D PER ORAL
     Route: 048
     Dates: start: 20100101

REACTIONS (5)
  - COGNITIVE DISORDER [None]
  - EDUCATIONAL PROBLEM [None]
  - HEARING IMPAIRED [None]
  - VISION BLURRED [None]
  - VISUAL IMPAIRMENT [None]
